FAERS Safety Report 6207136-3 (Version None)
Quarter: 2009Q2

REPORT INFORMATION
  Report Type: 
  Country: None (occurrence: None)
  Receive Date: 20090522
  Receipt Date: 20080930
  Transmission Date: 20091009
  Serious: Yes (Other)
  Sender: FDA-Public Use
  Company Number: 52881

PATIENT
  Sex: Male

DRUGS (1)
  1. ACETYLCYSTEINE [Suspect]
     Indication: PULMONARY FIBROSIS
     Dosage: 2ML BY MOUTH IN JUICE OR DIET SODA

REACTIONS (1)
  - ABDOMINAL DISCOMFORT [None]
